FAERS Safety Report 18464340 (Version 2)
Quarter: 2020Q4

REPORT INFORMATION
  Report Type: Spontaneous
  Country: US (occurrence: US)
  Receive Date: 20201104
  Receipt Date: 20201227
  Transmission Date: 20210114
  Serious: Yes (Hospitalization)
  Sender: FDA-Public Use
  Company Number: US-TEVA-2020-US-1845756

PATIENT
  Age: 41 Year
  Sex: Female

DRUGS (1)
  1. TREPROSTINIL MDV TEVA [Suspect]
     Active Substance: TREPROSTINIL
     Indication: RHEUMATOID ARTHRITIS
     Dosage: DOSE: 54.5 NG/KG/MIN; FREQUENCY: CONTINUOUS
     Route: 042
     Dates: start: 20190626

REACTIONS (4)
  - Product preparation issue [Unknown]
  - Feeling abnormal [Unknown]
  - Circumstance or information capable of leading to medication error [Unknown]
  - COVID-19 [Unknown]

NARRATIVE: CASE EVENT DATE: 20201027
